FAERS Safety Report 9233076 (Version 1)
Quarter: 2013Q2

REPORT INFORMATION
  Report Type: Spontaneous
  Country: US (occurrence: US)
  Receive Date: 20130416
  Receipt Date: 20130416
  Transmission Date: 20140414
  Serious: Yes (Other)
  Sender: FDA-Public Use
  Company Number: PHEH2013US008396

PATIENT
  Sex: Female

DRUGS (1)
  1. TOBI [Suspect]
     Dosage: UKN

REACTIONS (2)
  - Hepatic cirrhosis [Unknown]
  - Lung disorder [Unknown]
